FAERS Safety Report 19035959 (Version 1)
Quarter: 2021Q1

REPORT INFORMATION
  Report Type: Spontaneous
  Country: NL (occurrence: NL)
  Receive Date: 20210321
  Receipt Date: 20210321
  Transmission Date: 20210420
  Serious: Yes (Other)
  Sender: FDA-Public Use
  Company Number: NL-TEVA-2021-NL-1891825

PATIENT
  Age: 57 Year
  Sex: Female
  Weight: 48.5 kg

DRUGS (2)
  1. DILTIAZEM TABLET MGA 120MG / BRAND NAME NOT SPECIFIED [Suspect]
     Active Substance: DILTIAZEM
     Indication: MICROVASCULAR CORONARY ARTERY DISEASE
     Dosage: 120 MILLIGRAM DAILY; THERAPY START DATE ASKU, THERAPY END DATE ASKU
  2. DILTIAZEM TABLET MGA 120MG / BRAND NAME NOT SPECIFIED [Suspect]
     Active Substance: DILTIAZEM
     Dosage: 1 X DAILY, 60MG REDUCTION SINCE 120MG V, 60MG
     Dates: start: 2021, end: 20210219

REACTIONS (2)
  - Tachycardia [Recovering/Resolving]
  - Arrhythmia [Recovering/Resolving]

NARRATIVE: CASE EVENT DATE: 20210219
